FAERS Safety Report 5039746-3 (Version None)
Quarter: 2006Q2

REPORT INFORMATION
  Report Type: 
  Country: None (occurrence: None)
  Receive Date: 20060601
  Receipt Date: 20060118
  Transmission Date: 20061013
  Serious: No
  Sender: FDA-Public Use
  Company Number: 2006PV007260

PATIENT
  Age: 62 Year
  Sex: Female
  Weight: 63.9572 kg

DRUGS (3)
  1. BYETTA [Suspect]
     Indication: DRUG USE FOR UNKNOWN INDICATION
     Dosage: 5 MCG;BID;SC
     Route: 058
     Dates: start: 20060101
  2. GLUCOPHAGE [Concomitant]
  3. FORTAMET [Concomitant]

REACTIONS (4)
  - DRY MOUTH [None]
  - INFREQUENT BOWEL MOVEMENTS [None]
  - THERAPEUTIC RESPONSE UNEXPECTED [None]
  - WEIGHT DECREASED [None]
